FAERS Safety Report 19405454 (Version 1)
Quarter: 2021Q2

REPORT INFORMATION
  Report Type: Spontaneous
  Country: US (occurrence: US)
  Receive Date: 20210611
  Receipt Date: 20210611
  Transmission Date: 20210717
  Serious: No
  Sender: FDA-Public Use
  Company Number: US-ASTRAZENECA-2021A439123

PATIENT
  Age: 20457 Day
  Sex: Female
  Weight: 83.5 kg

DRUGS (2)
  1. BYDUREON BCISE [Suspect]
     Active Substance: EXENATIDE
     Route: 058
     Dates: start: 20210512
  2. BYDUREON [Suspect]
     Active Substance: EXENATIDE
     Dosage: ONCE A WEEK
     Route: 058

REACTIONS (7)
  - Injection site haemorrhage [Recovered/Resolved]
  - Circumstance or information capable of leading to device use error [Unknown]
  - Device issue [Unknown]
  - Device leakage [Unknown]
  - Device malfunction [Unknown]
  - Injection site bruising [Recovered/Resolved]
  - Device use issue [Unknown]

NARRATIVE: CASE EVENT DATE: 20210512
